FAERS Safety Report 8871437 (Version 1)
Quarter: 2012Q4

REPORT INFORMATION
  Report Type: Spontaneous
  Country: US (occurrence: None)
  Receive Date: 20121025
  Receipt Date: 20121025
  Transmission Date: 20130627
  Serious: Yes (Hospitalization)
  Sender: FDA-Public Use
  Company Number: US-DEXPHARM-20121400

PATIENT
  Age: 25 Year
  Sex: Male

DRUGS (9)
  1. OMEPRAZOLE [Suspect]
     Indication: STRESS ULCER
  2. METHOTREXATE [Suspect]
  3. LEUCOVORIN [Concomitant]
  4. CISPLATIN [Concomitant]
  5. DOXORUBICIN [Concomitant]
  6. DEXAMETHASONE [Concomitant]
  7. HYDROMORPHONE [Concomitant]
  8. PROCHLORPERAZINE [Concomitant]
  9. LANSOPRAZOLE [Concomitant]

REACTIONS (9)
  - Toxicity to various agents [None]
  - Grand mal convulsion [None]
  - Blood creatinine increased [None]
  - Mucosal inflammation [None]
  - Thrombocytopenia [None]
  - Haemodialysis [None]
  - Headache [None]
  - Oral candidiasis [None]
  - Drug interaction [None]
